FAERS Safety Report 17444456 (Version 1)
Quarter: 2020Q1

REPORT INFORMATION
  Report Type: Spontaneous
  Country: US (occurrence: US)
  Receive Date: 20200221
  Receipt Date: 20200221
  Transmission Date: 20200409
  Serious: Yes (Life-Threatening, Other)
  Sender: FDA-Public Use
  Company Number: None

PATIENT
  Age: 38 Year
  Sex: Female
  Weight: 90 kg

DRUGS (6)
  1. VICTOZA [Suspect]
     Active Substance: LIRAGLUTIDE
     Indication: DIABETES MELLITUS
     Dosage: ?          QUANTITY:.25 INJECTION(S);OTHER FREQUENCY:ONCE A WEEK;OTHER ROUTE:INJECTED INTO STOMACH?
     Dates: start: 20190101, end: 20191211
  2. NOVOLOG [Concomitant]
     Active Substance: INSULIN ASPART
  3. TRESIBA [Concomitant]
     Active Substance: INSULIN DEGLUDEC
  4. OZEMPIC [Suspect]
     Active Substance: SEMAGLUTIDE
  5. ASPRIN [Concomitant]
     Active Substance: ASPIRIN
  6. DEXCOM FEUROSINIDE [Concomitant]

REACTIONS (2)
  - Splenic cyst [None]
  - Pancreatic cyst [None]

NARRATIVE: CASE EVENT DATE: 20191211
